FAERS Safety Report 4323729-2 (Version None)
Quarter: 2004Q1

REPORT INFORMATION
  Report Type: 
  Country: None (occurrence: None)
  Receive Date: 20040323
  Receipt Date: 20040312
  Transmission Date: 20041129
  Serious: Yes (Death)
  Sender: FDA-Public Use
  Company Number: 163-20785-03120490

PATIENT
  Age: 68 Year
  Sex: Female

DRUGS (1)
  1. THALOMID [Suspect]
     Indication: GLIOMA
     Dosage: 200-300 MG, DAILY, ORAL
     Route: 048
     Dates: start: 20030527, end: 20031014

REACTIONS (1)
  - DEATH [None]
